FAERS Safety Report 8807159 (Version 1)
Quarter: 2012Q4

REPORT INFORMATION
  Report Type: 
  Country: US (occurrence: US)
  Receive Date: 20120925
  Receipt Date: 20120925
  Transmission Date: 20130627
  Serious: Yes (Other)
  Sender: FDA-Public Use
  Company Number: US-PFIZER INC-2012235074

PATIENT
  Age: 59 Year
  Sex: Male
  Weight: 63.49 kg

DRUGS (1)
  1. LIPITOR [Suspect]
     Indication: BLOOD CHOLESTEROL INCREASED
     Dosage: 10 mg, 1x/day
     Route: 048
     Dates: end: 20120430

REACTIONS (2)
  - Myocardial infarction [Unknown]
  - Coronary artery thrombosis [Unknown]
